FAERS Safety Report 9546833 (Version 1)
Quarter: 2013Q3

REPORT INFORMATION
  Report Type: Spontaneous
  Country: DK (occurrence: DK)
  Receive Date: 20130924
  Receipt Date: 20130924
  Transmission Date: 20140515
  Serious: Yes (Other)
  Sender: FDA-Public Use
  Company Number: DK-AMGEN-DNKSP2013066699

PATIENT
  Age: 34 Year
  Sex: Female

DRUGS (2)
  1. ENBREL [Suspect]
     Indication: ANKYLOSING SPONDYLITIS
     Dosage: 25 MG, ONCE TO TWICE A WEEK
     Route: 058
  2. ENBREL [Suspect]
     Dosage: 25 MG, ONCE EVERY SECOND WEEK
     Route: 058

REACTIONS (1)
  - Ankylosing spondylitis [Unknown]
